FAERS Safety Report 9461520 (Version 1)
Quarter: 2013Q3

REPORT INFORMATION
  Report Type: Spontaneous
  Country: ES (occurrence: ES)
  Receive Date: 20130816
  Receipt Date: 20130816
  Transmission Date: 20140515
  Serious: Yes (Hospitalization)
  Sender: FDA-Public Use
  Company Number: ES-MYLANLABS-2013S1017708

PATIENT
  Age: 71 Year
  Sex: Female

DRUGS (4)
  1. CALCIUM CARBONATE [Suspect]
     Indication: HYPOPARATHYROIDISM SECONDARY
     Dosage: 900 MG/DAY
     Route: 065
  2. CALCITRIOL [Suspect]
     Indication: HYPOPARATHYROIDISM SECONDARY
     Dosage: 1 MICROG/DAY
     Route: 065
  3. HYDROCHLOROTHIAZIDE/LISINOPRIL [Suspect]
     Indication: HYPERTENSION
     Dosage: 20/12.5 MG/DAY
     Route: 065
  4. LEVOTHYROXINE SODIUM [Concomitant]
     Indication: POST PROCEDURAL HYPOTHYROIDISM
     Dosage: 100 MICROG/DAY
     Route: 065

REACTIONS (1)
  - Milk-alkali syndrome [Recovering/Resolving]
